FAERS Safety Report 14485264 (Version 3)
Quarter: 2018Q1

REPORT INFORMATION
  Report Type: Spontaneous
  Country: US (occurrence: US)
  Receive Date: 20180205
  Receipt Date: 20180307
  Transmission Date: 20180509
  Serious: Yes (Other)
  Sender: FDA-Public Use
  Company Number: US-PFIZER INC-2018048054

PATIENT
  Age: 55 Year
  Sex: Female
  Weight: 74.84 kg

DRUGS (8)
  1. LYRICA [Suspect]
     Active Substance: PREGABALIN
     Indication: MULTIPLE SCLEROSIS
     Dosage: 150 MG, TWICE DAILY (ONE IN THE MORNING AND ONE AT NIGHT)
     Route: 048
     Dates: start: 20180118
  2. FENOFIBRATE. [Concomitant]
     Active Substance: FENOFIBRATE
     Indication: BLOOD CHOLESTEROL ABNORMAL
     Dosage: 145 MG, ONCE DAILY
     Route: 048
     Dates: start: 2007
  3. LYRICA [Suspect]
     Active Substance: PREGABALIN
     Indication: NEUROPATHY PERIPHERAL
  4. LEVOTHYROXINE. [Concomitant]
     Active Substance: LEVOTHYROXINE
     Indication: THYROID DISORDER
     Dosage: 75 UG, ONCE DAILY
     Route: 048
     Dates: start: 2007
  5. BUPROPION. [Concomitant]
     Active Substance: BUPROPION
     Indication: DEPRESSION
     Dosage: 300 MG, ONCE DAILY
     Route: 048
     Dates: start: 2007
  6. TEMAZEPAM. [Concomitant]
     Active Substance: TEMAZEPAM
     Indication: SLEEP DISORDER
     Dosage: 15 MG, ONCE DAILY
     Route: 048
     Dates: start: 2007
  7. LYRICA [Suspect]
     Active Substance: PREGABALIN
     Indication: PAIN IN EXTREMITY
     Dosage: 75 MG, 2X/DAY (2 AM AND 2PM)
     Route: 048
     Dates: start: 2008
  8. AVONEX [Concomitant]
     Active Substance: INTERFERON BETA-1A
     Indication: MULTIPLE SCLEROSIS
     Dosage: 30 UG, WEEKLY
     Dates: start: 2007

REACTIONS (6)
  - Dysphagia [Unknown]
  - Tinnitus [Recovering/Resolving]
  - Agitation [Recovering/Resolving]
  - Cataract [Not Recovered/Not Resolved]
  - Insomnia [Recovered/Resolved]
  - Hallucination [Recovering/Resolving]

NARRATIVE: CASE EVENT DATE: 2013
